FAERS Safety Report 8711729 (Version 2)
Quarter: 2012Q4

REPORT INFORMATION
  Report Type: 
  Country: IT (occurrence: IT)
  Receive Date: 20120807
  Receipt Date: 20120830
  Transmission Date: 20130627
  Serious: Yes (Hospitalization)
  Sender: FDA-Public Use
  Company Number: PHHY2012IT067161

PATIENT
  Age: 43 Year
  Sex: Female

DRUGS (2)
  1. GILENYA [Suspect]
     Indication: IMMUNOMODULATORY THERAPY
     Dosage: 0.5 mg, QD
     Route: 048
     Dates: start: 20111201, end: 20120715
  2. YAZ [Concomitant]

REACTIONS (3)
  - Abnormal behaviour [Not Recovered/Not Resolved]
  - Obsessive thoughts [Not Recovered/Not Resolved]
  - Mania [Not Recovered/Not Resolved]
